FAERS Safety Report 23204058 (Version 2)
Quarter: 2024Q2

REPORT INFORMATION
  Report Type: Other
  Country: US (occurrence: None)
  Receive Date: 20231120
  Receipt Date: 20240401
  Transmission Date: 20240715
  Serious: No
  Sender: FDA-Public Use
  Company Number: US-ROCHE-3455299

PATIENT
  Age: 40 Year
  Sex: Female
  Weight: 110.78 kg

DRUGS (18)
  1. OCREVUS [Suspect]
     Active Substance: OCRELIZUMAB
     Indication: Relapsing-remitting multiple sclerosis
     Dosage: ON 20/MAR/2023, SHE RECEIVED LAST DOSE OF OCRELIZUMAB.
     Route: 042
     Dates: start: 2021
  2. LYRICA [Concomitant]
     Active Substance: PREGABALIN
  3. BACLOFEN [Concomitant]
     Active Substance: BACLOFEN
  4. OMEPRAZOLE [Concomitant]
     Active Substance: OMEPRAZOLE
  5. CORLANOR [Concomitant]
     Active Substance: IVABRADINE HYDROCHLORIDE
  6. ATIVAN [Concomitant]
     Active Substance: LORAZEPAM
  7. CYMBALTA [Concomitant]
     Active Substance: DULOXETINE HYDROCHLORIDE
  8. METHOTREXATE [Concomitant]
     Active Substance: METHOTREXATE
  9. FOLIC ACID [Concomitant]
     Active Substance: FOLIC ACID
  10. CRESTOR [Concomitant]
     Active Substance: ROSUVASTATIN CALCIUM
  11. AMBIEN [Concomitant]
     Active Substance: ZOLPIDEM TARTRATE
  12. GABAPENTIN [Concomitant]
     Active Substance: GABAPENTIN
  13. TECFIDERA [Concomitant]
     Active Substance: DIMETHYL FUMARATE
  14. AVONEX [Concomitant]
     Active Substance: INTERFERON BETA-1A
  15. CALCIUM\VITAMIN D [Concomitant]
     Active Substance: CALCIUM\VITAMIN D
  16. LORAZEPAM [Concomitant]
     Active Substance: LORAZEPAM
  17. MAGNESIUM [Concomitant]
     Active Substance: MAGNESIUM
  18. ERGOCALCIFEROL [Concomitant]
     Active Substance: ERGOCALCIFEROL

REACTIONS (8)
  - JC polyomavirus test positive [Not Recovered/Not Resolved]
  - Rheumatoid arthritis [Not Recovered/Not Resolved]
  - Fibromyalgia [Not Recovered/Not Resolved]
  - Confusional state [Unknown]
  - Multiple sclerosis [Unknown]
  - Disturbance in attention [Unknown]
  - Balance disorder [Unknown]
  - Vitamin D deficiency [Unknown]

NARRATIVE: CASE EVENT DATE: 20230101
